FAERS Safety Report 12832584 (Version 1)
Quarter: 2016Q4

REPORT INFORMATION
  Report Type: Spontaneous
  Country: JP (occurrence: JP)
  Receive Date: 20161010
  Receipt Date: 20161010
  Transmission Date: 20170207
  Serious: No
  Sender: FDA-Public Use
  Company Number: JP-LUPIN PHARMACEUTICALS INC.-2016-04509

PATIENT
  Age: 82 Year
  Sex: Female

DRUGS (3)
  1. QUETIAPINE TABLET ^AMEL^ [Suspect]
     Active Substance: QUETIAPINE
     Indication: ANXIETY
     Dosage: SMALL DOSE
     Route: 048
  2. QUETIAPINE TABLET ^AMEL^ [Suspect]
     Active Substance: QUETIAPINE
     Dosage: 250 MG
     Route: 048
  3. QUETIAPINE TABLET ^AMEL^ [Suspect]
     Active Substance: QUETIAPINE
     Dosage: 225 MG
     Route: 048

REACTIONS (1)
  - Dysphagia [Recovered/Resolved]
